FAERS Safety Report 8489924-6 (Version None)
Quarter: 2012Q3

REPORT INFORMATION
  Report Type: 
  Country: None (occurrence: None)
  Receive Date: 20120705
  Receipt Date: 20120702
  Transmission Date: 20120928
  Serious: No
  Sender: FDA-Public Use
  Company Number: US-PFIZER INC-2012158323

PATIENT
  Sex: Male
  Weight: 17 kg

DRUGS (1)
  1. GENOTROPIN [Suspect]
     Indication: DWARFISM
     Dosage: UNK
     Dates: start: 20120201, end: 20120701

REACTIONS (1)
  - RASH [None]
